FAERS Safety Report 17641192 (Version 6)
Quarter: 2020Q3

REPORT INFORMATION
  Report Type: Report from Study
  Country: US (occurrence: US)
  Receive Date: 20200407
  Receipt Date: 20200916
  Transmission Date: 20201102
  Serious: Yes (Hospitalization)
  Sender: FDA-Public Use
  Company Number: NVSC2020US089695

PATIENT
  Sex: Female

DRUGS (2)
  1. COSENTYX [Suspect]
     Active Substance: SECUKINUMAB
     Indication: PSORIASIS
     Dosage: 300 MG, QMO
     Route: 058
     Dates: start: 20180127
  2. COSENTYX [Suspect]
     Active Substance: SECUKINUMAB
     Dosage: 300 MG, QMO
     Route: 058
     Dates: start: 20200128

REACTIONS (7)
  - Hypersensitivity [Unknown]
  - Nerve injury [Unknown]
  - Postoperative wound infection [Unknown]
  - Product dose omission issue [Unknown]
  - Blood pressure abnormal [Unknown]
  - Product packaging issue [Unknown]
  - Pruritus [Unknown]
